FAERS Safety Report 4536853-6 (Version None)
Quarter: 2004Q4

REPORT INFORMATION
  Report Type: 
  Country: None (occurrence: None)
  Receive Date: 20041223
  Receipt Date: 20041221
  Transmission Date: 20050328
  Serious: Yes (Life-Threatening, Hospitalization, Other)
  Sender: FDA-Public Use
  Company Number: CL-GLAXOSMITHKLINE-A0538273A

PATIENT
  Age: 20 Year
  Sex: Male
  Weight: 79 kg

DRUGS (4)
  1. LAMICTAL [Suspect]
     Indication: DRUG USE FOR UNKNOWN INDICATION
     Route: 048
     Dates: start: 20040824, end: 20041214
  2. WELLBUTRIN [Concomitant]
     Indication: AFFECTIVE DISORDER
     Dosage: 150MG PER DAY
     Dates: start: 20040801
  3. UNSPECIFIED MEDICATION [Concomitant]
     Indication: AUTONOMIC NERVOUS SYSTEM IMBALANCE
     Dosage: .1MG PER DAY
     Dates: start: 20020201
  4. OLANZAPINE [Concomitant]
     Indication: BIPOLAR DISORDER
     Dosage: 1.25MG PER DAY

REACTIONS (4)
  - BLOOD CREATININE INCREASED [None]
  - CONVULSION [None]
  - NEPHRITIS [None]
  - REFUSAL OF TREATMENT BY RELATIVE [None]
